FAERS Safety Report 16618798 (Version 2)
Quarter: 2019Q3

REPORT INFORMATION
  Report Type: Spontaneous
  Country: FR (occurrence: FR)
  Receive Date: 20190723
  Receipt Date: 20190808
  Transmission Date: 20191004
  Serious: Yes (Other)
  Sender: FDA-Public Use
  Company Number: PHHY2019FR165972

PATIENT
  Age: 4 Year
  Sex: Female

DRUGS (1)
  1. CETIRIZINE [Suspect]
     Active Substance: CETIRIZINE HYDROCHLORIDE
     Indication: ANTIALLERGIC THERAPY
     Dosage: 0.30 MG/KG, QD: 10 DROPS FOR SEVEN DAYS
     Route: 048

REACTIONS (3)
  - Delirium [Unknown]
  - Hallucination [Unknown]
  - Toxicity to various agents [Unknown]
